FAERS Safety Report 6232147-1 (Version None)
Quarter: 2009Q2

REPORT INFORMATION
  Report Type: 
  Country: None (occurrence: None)
  Receive Date: 20090617
  Receipt Date: 20090603
  Transmission Date: 20091009
  Serious: Yes (Hospitalization)
  Sender: FDA-Public Use
  Company Number: US-RANBAXY-2009RR-24517

PATIENT
  Age: 56 Year
  Sex: Female

DRUGS (17)
  1. ATORVASTATIN/AMLODIPINE [Suspect]
  2. AMLODIPINE [Suspect]
  3. NISOLDIPINE [Suspect]
  4. ISRADIPINE [Suspect]
  5. FUROSEMIDE [Concomitant]
  6. METOPROLOL SUCCINATE [Concomitant]
  7. IRBESARTAN [Concomitant]
  8. CLONIDINE [Concomitant]
  9. ASPIRIN [Concomitant]
  10. FENOFIBRATE [Concomitant]
  11. PIOGLITAZONE [Concomitant]
  12. GLIMEPIRIDE [Concomitant]
  13. NPH INSULIN [Concomitant]
  14. MULTI-VITAMINS [Concomitant]
  15. BUPROPION HCL [Concomitant]
  16. PROCRIT [Concomitant]
  17. FOLTX [Concomitant]

REACTIONS (1)
  - SMALL BOWEL ANGIOEDEMA [None]
